FAERS Safety Report 23780477 (Version 2)
Quarter: 2024Q3

REPORT INFORMATION
  Report Type: Spontaneous
  Country: GB (occurrence: GB)
  Receive Date: 20240425
  Receipt Date: 20240930
  Transmission Date: 20241016
  Serious: Yes (Other)
  Sender: JOHNSON AND JOHNSON
  Company Number: GB-CELLTRION HEALTHCARE HUNGARY KFT-2024GB008320

PATIENT

DRUGS (2)
  1. REMICADE [Suspect]
     Active Substance: INFLIXIMAB
     Indication: Crohn^s disease
     Route: 065
  2. INFLIXIMAB [Suspect]
     Active Substance: INFLIXIMAB
     Indication: Crohn^s disease
     Route: 058

REACTIONS (4)
  - Hand fracture [Not Recovered/Not Resolved]
  - Abscess [Recovered/Resolved]
  - Nasopharyngitis [Recovered/Resolved]
  - Intentional dose omission [Recovering/Resolving]

NARRATIVE: CASE EVENT DATE: 20240414
